FAERS Safety Report 4667099-9 (Version None)
Quarter: 2005Q2

REPORT INFORMATION
  Report Type: 
  Country: None (occurrence: None)
  Receive Date: 20050520
  Receipt Date: 20050318
  Transmission Date: 20051028
  Serious: Yes (Other)
  Sender: FDA-Public Use
  Company Number: PHBS2005CH03971

PATIENT
  Age: 70 Year
  Sex: Female

DRUGS (6)
  1. ZOMETA [Suspect]
     Indication: METASTASES TO BONE
     Route: 042
     Dates: start: 20030723, end: 20050113
  2. TAMOXIFEN [Concomitant]
     Route: 048
     Dates: start: 20030404, end: 20030917
  3. NOVANTRONE [Suspect]
     Route: 042
     Dates: start: 20040617, end: 20040909
  4. XELODA [Suspect]
     Route: 048
     Dates: start: 20040909
  5. NAVELBINE [Suspect]
     Route: 042
     Dates: start: 20040415, end: 20040603
  6. ARIMIDEX [Concomitant]
     Route: 048
     Dates: start: 20030919, end: 20040401

REACTIONS (6)
  - ASEPTIC NECROSIS BONE [None]
  - BONE LESION [None]
  - DENTAL TREATMENT [None]
  - OSTEONECROSIS [None]
  - PAIN IN JAW [None]
  - TOOTH EXTRACTION [None]
